FAERS Safety Report 8381345 (Version 2)
Quarter: 2012Q4

REPORT INFORMATION
  Report Type: Spontaneous
  Country: MX (occurrence: MX)
  Receive Date: 20120131
  Receipt Date: 20120831
  Transmission Date: 20130627
  Serious: Yes (Other)
  Sender: FDA-Public Use
  Company Number: PHHY2011MX112290

PATIENT
  Age: 22 Year
  Sex: Male

DRUGS (2)
  1. TEGRETOL [Suspect]
     Indication: EPILEPSY
     Dosage: 2 tablets per day
     Dates: start: 200903
  2. TEGRETOL [Suspect]
     Dosage: 3 DF, UNK
     Dates: start: 20100814

REACTIONS (5)
  - Petit mal epilepsy [Recovered/Resolved]
  - Convulsion [Recovered/Resolved]
  - Sleep disorder [Recovered/Resolved]
  - Stress [Recovered/Resolved]
  - Fatigue [Recovered/Resolved]
